FAERS Safety Report 4849956-3 (Version None)
Quarter: 2005Q4

REPORT INFORMATION
  Report Type: 
  Country: None (occurrence: None)
  Receive Date: 20051101
  Receipt Date: 20050429
  Transmission Date: 20060501
  Serious: Yes (Other)
  Sender: FDA-Public Use
  Company Number: 200510244BCA

PATIENT
  Age: 43 Year
  Sex: Female
  Weight: 68.2 kg

DRUGS (1)
  1. GAMUNEX [Suspect]
     Indication: IMMUNODEFICIENCY COMMON VARIABLE
     Dosage: 50 G, TOTAL DAILY, INTRAVENOUS
     Route: 042
     Dates: start: 20041116

REACTIONS (4)
  - HEADACHE [None]
  - MENINGITIS ASEPTIC [None]
  - MUSCULOSKELETAL STIFFNESS [None]
  - PROSTRATION [None]
